FAERS Safety Report 8246018-2 (Version None)
Quarter: 2012Q1

REPORT INFORMATION
  Report Type: 
  Country: None (occurrence: None)
  Receive Date: 20120327
  Receipt Date: 20120316
  Transmission Date: 20120608
  Serious: Yes (Other)
  Sender: FDA-Public Use
  Company Number: AUR-APL-2011-06245

PATIENT
  Age: 67 Year
  Sex: Female
  Weight: 93 kg

DRUGS (17)
  1. WARFARIN SODIUM [Suspect]
     Indication: ANTICOAGULANT THERAPY
     Dates: start: 20020101
  2. IPRATROPIUM- ALBUTEROL (COMBIVENT) [Concomitant]
  3. SOTALOL HYDROCHLORIDE [Concomitant]
  4. CEFTRIAXONE [Suspect]
     Indication: URINARY TRACT INFECTION
     Dosage: (1 GM), INTRAMUSCULAR
     Route: 030
  5. GEMFIBROZIL [Concomitant]
  6. PIOGLITAZONE [Concomitant]
  7. METOCLOPRAMIDE [Concomitant]
  8. SIMVASTATIN [Concomitant]
  9. OMEPRAZOLE [Concomitant]
  10. LEVOTHYROXINE SODIUM [Concomitant]
  11. FUROSEMIDE [Concomitant]
  12. CEFUROXIME AXETIL (CEFUOXIME AXETIL) [Concomitant]
  13. PHENAZOPYRIDINE (PHENAZOPYRIDINE) [Concomitant]
  14. ALBUTEROL [Concomitant]
  15. CITALOPRAM HYDROBROMIDE [Concomitant]
  16. METFORMIN HCL [Concomitant]
  17. POTASSIUM CHLORIDE [Concomitant]

REACTIONS (3)
  - DRUG INTERACTION [None]
  - URINARY TRACT INFECTION [None]
  - INTERNATIONAL NORMALISED RATIO INCREASED [None]
